FAERS Safety Report 8296567-6 (Version None)
Quarter: 2012Q2

REPORT INFORMATION
  Report Type: 
  Country: None (occurrence: None)
  Receive Date: 20120418
  Receipt Date: 20120403
  Transmission Date: 20120825
  Serious: Yes (Hospitalization, Other)
  Sender: FDA-Public Use
  Company Number: PHHY2012JP020437

PATIENT
  Age: 45 Year
  Sex: Female

DRUGS (2)
  1. CYCLOSPORINE [Suspect]
     Indication: DERMATITIS EXFOLIATIVE
     Dosage: UNK UKN, UNK
     Route: 048
  2. PREDNISOLONE [Concomitant]
     Indication: DERMATITIS EXFOLIATIVE
     Dosage: UNK UKN, UNK
     Route: 048

REACTIONS (11)
  - HEART VALVE INCOMPETENCE [None]
  - STAPHYLOCOCCAL INFECTION [None]
  - ENDOCARDITIS [None]
  - VISUAL IMPAIRMENT [None]
  - DISSEMINATED INTRAVASCULAR COAGULATION [None]
  - COMA [None]
  - PYREXIA [None]
  - BRAIN ABSCESS [None]
  - SPINAL OSTEOARTHRITIS [None]
  - MITRAL VALVE DISEASE [None]
  - ALTERED STATE OF CONSCIOUSNESS [None]
